FAERS Safety Report 5201991-1 (Version None)
Quarter: 2007Q1

REPORT INFORMATION
  Report Type: 
  Country: None (occurrence: None)
  Receive Date: 20070104
  Receipt Date: 20070104
  Transmission Date: 20070707
  Serious: Yes (Other)
  Sender: FDA-Public Use
  Company Number: None

PATIENT
  Age: 65 Year
  Sex: Female
  Weight: 49.8957 kg

DRUGS (2)
  1. DEPO-MEDROL [Suspect]
     Indication: DISCOMFORT
     Dosage: I DON''T KNOW   ONE TIME  EPIDURAL ONE TIME INJECTION
     Route: 008
     Dates: start: 20061215, end: 20061215
  2. DEPO-MEDROL [Suspect]
     Indication: SPINAL DISORDER
     Dosage: I DON''T KNOW   ONE TIME  EPIDURAL ONE TIME INJECTION
     Route: 008
     Dates: start: 20061215, end: 20061215

REACTIONS (6)
  - BURNING SENSATION [None]
  - DISCOMFORT [None]
  - HYPOAESTHESIA [None]
  - MUSCLE SPASMS [None]
  - PAIN [None]
  - POST PROCEDURAL COMPLICATION [None]
